FAERS Safety Report 24428039 (Version 1)
Quarter: 2024Q4

REPORT INFORMATION
  Report Type: Spontaneous
  Country: FR (occurrence: FR)
  Receive Date: 20241011
  Receipt Date: 20241011
  Transmission Date: 20250114
  Serious: Yes (Death)
  Sender: PFIZER
  Company Number: FR-ROCHE-3496722

PATIENT
  Age: 64 Year
  Sex: Male
  Weight: 97 kg

DRUGS (6)
  1. BEVACIZUMAB [Suspect]
     Active Substance: BEVACIZUMAB
     Indication: Hepatocellular carcinoma
     Dosage: DOSE LAST STUDY DRUG ADMIN PRIOR AE: 1560MG
     Route: 042
     Dates: start: 20231220
  2. TIRAGOLUMAB [Suspect]
     Active Substance: TIRAGOLUMAB
     Indication: Hepatocellular carcinoma
     Dosage: UNK UNK, EVERY 3 WEEKS-INFUSION
     Route: 042
     Dates: start: 20231220
  3. ATEZOLIZUMAB [Suspect]
     Active Substance: ATEZOLIZUMAB
     Indication: Hepatocellular carcinoma
     Dosage: DOSE OF LAST STUDY DRUG ADMIN TO AE : 1200MG-INFUSION
     Route: 042
     Dates: start: 20231220
  4. IRBESARTAN [Concomitant]
     Active Substance: IRBESARTAN
     Indication: Hypertension
     Dosage: 150 MG, 1X/DAY
     Route: 048
     Dates: start: 20231218
  5. ACETAMINOPHEN\OPIUM [Concomitant]
     Active Substance: ACETAMINOPHEN\OPIUM
     Dosage: FREQ: 0.5 D;
     Route: 048
     Dates: start: 20231222, end: 20240121
  6. ACETAMINOPHEN [Concomitant]
     Active Substance: ACETAMINOPHEN
     Dosage: FREQ: 0.5 D;
     Route: 048
     Dates: start: 20231222, end: 20240121

REACTIONS (4)
  - Hepatic cirrhosis [Fatal]
  - Disease recurrence [Fatal]
  - Infusion related reaction [Recovered/Resolved]
  - Off label use [Unknown]

NARRATIVE: CASE EVENT DATE: 20231220
